FAERS Safety Report 15066379 (Version 1)
Quarter: 2018Q2

REPORT INFORMATION
  Report Type: Spontaneous
  Country: US (occurrence: US)
  Receive Date: 20180606
  Receipt Date: 20180606
  Transmission Date: 20180711
  Serious: Yes (Disabling, Other)
  Sender: FDA-Public Use
  Company Number: None

PATIENT
  Age: 47 Year
  Sex: Female
  Weight: 90.9 kg

DRUGS (15)
  1. EPIVIR [Concomitant]
     Active Substance: LAMIVUDINE
  2. VIREAD [Concomitant]
     Active Substance: TENOFOVIR DISOPROXIL FUMARATE
  3. LORAZEPAM. [Concomitant]
     Active Substance: LORAZEPAM
  4. ENBREL [Concomitant]
     Active Substance: ETANERCEPT
  5. FENTANYL. [Concomitant]
     Active Substance: FENTANYL
  6. VITAMIN D [Concomitant]
     Active Substance: CHOLECALCIFEROL
  7. DILAUID [Concomitant]
  8. BENICAR [Concomitant]
     Active Substance: OLMESARTAN MEDOXOMIL
  9. DULCOLAX NOS [Concomitant]
     Active Substance: BISACODYL OR DOCUSATE SODIUM
  10. GENVOYA [Suspect]
     Active Substance: COBICISTAT\ELVITEGRAVIR\EMTRICITABINE\TENOFOVIR ALAFENAMIDE FUMARATE
     Indication: HIV INFECTION
     Dosage: ?          QUANTITY:1 DF DOSAGE FORM;?
     Route: 048
     Dates: start: 20171211, end: 20180511
  11. PRISTIQ EXTENDED-RELEASE [Concomitant]
     Active Substance: DESVENLAFAXINE SUCCINATE
  12. VIRACEPT [Concomitant]
     Active Substance: NELFINAVIR MESYLATE
  13. CYCLOBENZAPR [Concomitant]
     Active Substance: CYCLOBENZAPRINE
  14. IBUPROFEN. [Concomitant]
     Active Substance: IBUPROFEN
  15. WELLBUTRIN [Concomitant]
     Active Substance: BUPROPION HYDROCHLORIDE

REACTIONS (8)
  - Liver function test increased [None]
  - Weight increased [None]
  - Dry mouth [None]
  - HIV test positive [None]
  - Low density lipoprotein increased [None]
  - Constipation [None]
  - Abdominal pain upper [None]
  - Nausea [None]

NARRATIVE: CASE EVENT DATE: 20180201
